FAERS Safety Report 11918092 (Version 1)
Quarter: 2016Q1

REPORT INFORMATION
  Report Type: Other
  Country: US (occurrence: US)
  Receive Date: 20160114
  Receipt Date: 20160114
  Transmission Date: 20160526
  Serious: No
  Sender: FDA-Public Use
  Company Number: US-DEP_07648_2015

PATIENT
  Age: 34 Year
  Sex: Female
  Weight: 66.68 kg

DRUGS (2)
  1. BUSPAR [Concomitant]
     Active Substance: BUSPIRONE HYDROCHLORIDE
     Indication: ANXIETY
     Dosage: 15 MG, 2/DAY
     Route: 048
     Dates: start: 201210, end: 201409
  2. NUCYNTA [Suspect]
     Active Substance: TAPENTADOL HYDROCHLORIDE
     Indication: PAIN
     Dosage: 100 MG, EVERY 4 HRS
     Route: 048
     Dates: start: 201208

REACTIONS (4)
  - Product colour issue [Unknown]
  - Thyroid disorder [Unknown]
  - Product physical issue [Unknown]
  - Pruritus [Not Recovered/Not Resolved]

NARRATIVE: CASE EVENT DATE: 201402
